FAERS Safety Report 25022797 (Version 1)
Quarter: 2025Q1

REPORT INFORMATION
  Report Type: Spontaneous
  Country: US (occurrence: US)
  Receive Date: 20250228
  Receipt Date: 20250228
  Transmission Date: 20250409
  Serious: No
  Sender: MYLAN
  Company Number: US-MYLANLABS-2025M1015101

PATIENT
  Age: 82 Year
  Sex: Male
  Weight: 77.1 kg

DRUGS (1)
  1. ALPRAZOLAM [Suspect]
     Active Substance: ALPRAZOLAM
     Indication: Anxiety
     Dosage: 0.25 MILLIGRAM, TID (1 TABLET THRICE A DAY AS NEEDED)

REACTIONS (1)
  - Off label use [Unknown]
